FAERS Safety Report 6619293-5 (Version None)
Quarter: 2010Q1

REPORT INFORMATION
  Report Type: 
  Country: None (occurrence: None)
  Receive Date: 20100303
  Receipt Date: 20100218
  Transmission Date: 20100710
  Serious: Yes (Hospitalization)
  Sender: FDA-Public Use
  Company Number: 1000012129

PATIENT

DRUGS (4)
  1. CITALOPRAM HYDROBROMIDE [Suspect]
     Dosage: 30 MG (30 MG, 1 IN 1 D), ORAL; 10 MG (10 MG, 1 IN 1 D), ORAL
     Route: 048
     Dates: end: 20100201
  2. CITALOPRAM HYDROBROMIDE [Suspect]
     Dosage: 30 MG (30 MG, 1 IN 1 D), ORAL; 10 MG (10 MG, 1 IN 1 D), ORAL
     Route: 048
     Dates: start: 20100201
  3. LITHIUM [Concomitant]
  4. ANTIPSYCHOTICS [Concomitant]

REACTIONS (4)
  - LOWER RESPIRATORY TRACT INFECTION [None]
  - RENAL IMPAIRMENT [None]
  - SEPSIS [None]
  - VIRAEMIA [None]
